FAERS Safety Report 8689064 (Version 2)
Quarter: 2013Q2

REPORT INFORMATION
  Report Type: Spontaneous
  Country: US (occurrence: US)
  Receive Date: 20120727
  Receipt Date: 20130521
  Transmission Date: 20140414
  Serious: Yes (Hospitalization)
  Sender: FDA-Public Use
  Company Number: US-ASTRAZENECA-2011SE74229

PATIENT
  Age: 20 Year
  Sex: Male

DRUGS (3)
  1. SEROQUEL [Suspect]
     Indication: BIPOLAR DISORDER
     Route: 048
  2. LAMICTAL [Concomitant]
  3. LITHIUM [Concomitant]

REACTIONS (10)
  - Feeling abnormal [Unknown]
  - Bipolar disorder [Unknown]
  - Withdrawal syndrome [Unknown]
  - Anxiety [Unknown]
  - Mania [Unknown]
  - Mood swings [Unknown]
  - Insomnia [Unknown]
  - Hallucination, visual [Unknown]
  - Somnolence [Unknown]
  - Drug dose omission [Unknown]
